FAERS Safety Report 5991822-4 (Version None)
Quarter: 2008Q4

REPORT INFORMATION
  Report Type: 
  Country: None (occurrence: None)
  Receive Date: 20081211
  Receipt Date: 20080506
  Transmission Date: 20090506
  Serious: No
  Sender: FDA-Public Use
  Company Number: US-AMGEN-KDL277834

PATIENT
  Sex: Male

DRUGS (1)
  1. ENBREL [Suspect]
     Indication: PSORIATIC ARTHROPATHY
     Route: 058
     Dates: start: 20070401, end: 20080201

REACTIONS (4)
  - OEDEMA PERIPHERAL [None]
  - PRURITUS [None]
  - SKIN FISSURES [None]
  - WEIGHT INCREASED [None]
